FAERS Safety Report 5870836-9 (Version None)
Quarter: 2008Q3

REPORT INFORMATION
  Report Type: 
  Country: None (occurrence: None)
  Receive Date: 20080904
  Receipt Date: 20080825
  Transmission Date: 20090109
  Serious: Yes (Death, Hospitalization)
  Sender: FDA-Public Use
  Company Number: FR-ABBOTT-08P-056-0472756-00

PATIENT
  Sex: Male

DRUGS (10)
  1. DEPAKENE [Suspect]
     Indication: DRUG USE FOR UNKNOWN INDICATION
     Route: 048
     Dates: start: 20070401, end: 20070601
  2. DEPAKENE [Suspect]
     Route: 048
     Dates: start: 20070601
  3. ESCITALOPRAM OXALATE [Suspect]
     Indication: ABNORMAL BEHAVIOUR
     Route: 048
     Dates: start: 20070401, end: 20070601
  4. ESCITALOPRAM OXALATE [Suspect]
     Route: 048
     Dates: start: 20070601
  5. LOXAPINE [Suspect]
     Indication: ABNORMAL BEHAVIOUR
     Route: 048
     Dates: start: 20070401, end: 20070427
  6. MIANSERIN HYDROCHLORIDE [Suspect]
     Indication: ABNORMAL BEHAVIOUR
     Route: 048
     Dates: end: 20080401
  7. MIANSERIN HYDROCHLORIDE [Suspect]
     Dosage: DOSE INCREASED NOS
     Route: 048
     Dates: start: 20080401, end: 20080626
  8. MEMANTINE HCL [Suspect]
     Indication: DEMENTIA ALZHEIMER'S TYPE
     Route: 048
     Dates: start: 20070527, end: 20080528
  9. CLONAZEPAM [Concomitant]
     Indication: DRUG USE FOR UNKNOWN INDICATION
     Route: 048
     Dates: start: 20070401, end: 20070601
  10. ACETYLSALICYLIC ACID SRT [Concomitant]
     Indication: DRUG USE FOR UNKNOWN INDICATION
     Route: 048
     Dates: start: 20060601

REACTIONS (6)
  - AGGRESSION [None]
  - DISTURBANCE IN ATTENTION [None]
  - FALL [None]
  - GAIT DISTURBANCE [None]
  - PSYCHOMOTOR SKILLS IMPAIRED [None]
  - SUBDURAL HAEMATOMA [None]
